FAERS Safety Report 16405628 (Version 2)
Quarter: 2019Q3

REPORT INFORMATION
  Report Type: Spontaneous
  Country: US (occurrence: US)
  Receive Date: 20190607
  Receipt Date: 20190911
  Transmission Date: 20191004
  Serious: Yes (Hospitalization, Other)
  Sender: FDA-Public Use
  Company Number: US-ASTRAZENECA-2018SE98874

PATIENT
  Age: 21633 Day
  Sex: Female

DRUGS (38)
  1. PRILOSEC [Suspect]
     Active Substance: OMEPRAZOLE MAGNESIUM
     Indication: GASTROOESOPHAGEAL REFLUX DISEASE
     Dosage: GENERIC
     Route: 065
     Dates: start: 20150618, end: 201607
  2. PROTONIX [Suspect]
     Active Substance: PANTOPRAZOLE SODIUM
     Indication: GASTROOESOPHAGEAL REFLUX DISEASE
     Route: 065
     Dates: start: 20040113, end: 200402
  3. NEXIUM [Suspect]
     Active Substance: ESOMEPRAZOLE MAGNESIUM
     Indication: GASTROOESOPHAGEAL REFLUX DISEASE
     Route: 048
     Dates: start: 20030711, end: 200308
  4. PRILOSEC [Suspect]
     Active Substance: OMEPRAZOLE MAGNESIUM
     Indication: GASTROOESOPHAGEAL REFLUX DISEASE
     Route: 048
     Dates: start: 20030125, end: 200303
  5. PRILOSEC [Suspect]
     Active Substance: OMEPRAZOLE MAGNESIUM
     Indication: DYSPEPSIA
     Dosage: GENERIC
     Route: 065
     Dates: start: 20150618, end: 201607
  6. PRILOSEC [Suspect]
     Active Substance: OMEPRAZOLE MAGNESIUM
     Indication: DYSPEPSIA
     Dosage: GENERIC
     Route: 065
     Dates: start: 20150112, end: 201506
  7. ATENOLOL. [Concomitant]
     Active Substance: ATENOLOL
     Indication: BLOOD PRESSURE MEASUREMENT
     Dates: start: 20141211
  8. NEXIUM [Suspect]
     Active Substance: ESOMEPRAZOLE MAGNESIUM
     Indication: DYSPEPSIA
     Route: 048
     Dates: start: 20030711, end: 200308
  9. PRILOSEC [Suspect]
     Active Substance: OMEPRAZOLE MAGNESIUM
     Indication: DYSPEPSIA
     Route: 048
     Dates: start: 2003, end: 2004
  10. PROTONIX [Suspect]
     Active Substance: PANTOPRAZOLE SODIUM
     Indication: GASTROOESOPHAGEAL REFLUX DISEASE
     Route: 065
     Dates: start: 2003, end: 2004
  11. AMITRIPTYLINE [Concomitant]
     Active Substance: AMITRIPTYLINE
     Indication: PAIN
     Dates: start: 20150803
  12. PRILOSEC [Suspect]
     Active Substance: OMEPRAZOLE MAGNESIUM
     Indication: DYSPEPSIA
     Route: 048
     Dates: start: 20030125, end: 200303
  13. PROTONIX [Suspect]
     Active Substance: PANTOPRAZOLE SODIUM
     Indication: DYSPEPSIA
     Route: 065
     Dates: start: 20040113, end: 200402
  14. PROTONIX [Suspect]
     Active Substance: PANTOPRAZOLE SODIUM
     Indication: DYSPEPSIA
     Dosage: GENERIC
     Route: 065
     Dates: start: 20160531, end: 201612
  15. NORVASC [Concomitant]
     Active Substance: AMLODIPINE BESYLATE
     Route: 065
  16. TRIAMCINOLONE [Concomitant]
     Active Substance: TRIAMCINOLONE
     Route: 065
  17. NEXIUM [Suspect]
     Active Substance: ESOMEPRAZOLE MAGNESIUM
     Indication: GASTROOESOPHAGEAL REFLUX DISEASE
     Route: 048
     Dates: start: 2003, end: 2004
  18. PROTONIX [Suspect]
     Active Substance: PANTOPRAZOLE SODIUM
     Indication: DYSPEPSIA
     Route: 065
     Dates: start: 2003, end: 2004
  19. PROTONIX [Suspect]
     Active Substance: PANTOPRAZOLE SODIUM
     Indication: GASTROOESOPHAGEAL REFLUX DISEASE
     Dosage: GENERIC
     Route: 065
     Dates: start: 20160531, end: 201612
  20. MAVIK [Concomitant]
     Active Substance: TRANDOLAPRIL
     Route: 065
  21. ESTRADIOL. [Concomitant]
     Active Substance: ESTRADIOL
     Route: 065
  22. CARAFATE [Concomitant]
     Active Substance: SUCRALFATE
     Indication: ULCER
     Dates: start: 20170531
  23. IBUPROFEN. [Concomitant]
     Active Substance: IBUPROFEN
     Indication: PAIN
     Dates: start: 201605, end: 201606
  24. NEXIUM [Suspect]
     Active Substance: ESOMEPRAZOLE MAGNESIUM
     Indication: DYSPEPSIA
     Route: 048
     Dates: start: 2003, end: 2004
  25. ATRIPLA [Concomitant]
     Active Substance: EFAVIRENZ\EMTRICITABINE\TENOFOVIR DISOPROXIL FUMARATE
     Indication: HIV INFECTION
     Dates: start: 20141212
  26. LISINOPRIL. [Concomitant]
     Active Substance: LISINOPRIL
     Indication: HYPERTENSION
     Dates: start: 20160502
  27. TRAZODONE [Concomitant]
     Active Substance: TRAZODONE HYDROCHLORIDE
     Indication: DEPRESSION
     Dates: start: 20150223
  28. PRILOSEC [Suspect]
     Active Substance: OMEPRAZOLE MAGNESIUM
     Indication: GASTROOESOPHAGEAL REFLUX DISEASE
     Route: 048
     Dates: start: 2003, end: 2004
  29. PRILOSEC [Suspect]
     Active Substance: OMEPRAZOLE MAGNESIUM
     Indication: GASTROOESOPHAGEAL REFLUX DISEASE
     Dosage: GENERIC
     Route: 065
     Dates: start: 20150112, end: 201506
  30. PROTONIX [Suspect]
     Active Substance: PANTOPRAZOLE SODIUM
     Indication: GASTROOESOPHAGEAL REFLUX DISEASE
     Dosage: GENERIC
     Route: 065
  31. PROTONIX [Suspect]
     Active Substance: PANTOPRAZOLE SODIUM
     Indication: DYSPEPSIA
     Dosage: GENERIC
     Route: 065
  32. ERYTHROMYCIN. [Concomitant]
     Active Substance: ERYTHROMYCIN
     Route: 065
  33. PAROXETINE. [Concomitant]
     Active Substance: PAROXETINE
     Indication: DEPRESSION
     Dates: start: 20141211
  34. GLUCOTROL [Concomitant]
     Active Substance: GLIPIZIDE
     Route: 065
  35. HYDROCODONE [Concomitant]
     Active Substance: HYDROCODONE
     Route: 065
  36. NOVOLIN [Concomitant]
     Active Substance: INSULIN HUMAN
     Indication: DIABETES MELLITUS
     Dates: start: 20141212
  37. SIMVASTATIN. [Concomitant]
     Active Substance: SIMVASTATIN
     Indication: BLOOD CHOLESTEROL INCREASED
     Dates: start: 20141211
  38. PENICILLIN [Concomitant]
     Active Substance: PENICILLIN

REACTIONS (3)
  - Chronic kidney disease [Unknown]
  - Renal failure [Not Recovered/Not Resolved]
  - Acute kidney injury [Unknown]

NARRATIVE: CASE EVENT DATE: 20160521
